FAERS Safety Report 8839497 (Version 1)
Quarter: 2012Q4

REPORT INFORMATION
  Report Type: Spontaneous
  Country: US (occurrence: None)
  Receive Date: 20121012
  Receipt Date: 20121012
  Transmission Date: 20130627
  Serious: Yes (Other)
  Sender: FDA-Public Use
  Company Number: None

PATIENT
  Age: 35 Year
  Sex: Female
  Weight: 71.67 kg

DRUGS (1)
  1. CIPRO [Suspect]
     Indication: UTI
     Dates: start: 20120829, end: 20120831

REACTIONS (3)
  - Tendonitis [None]
  - Paraesthesia [None]
  - Pain [None]
